FAERS Safety Report 18331191 (Version 1)
Quarter: 2020Q3

REPORT INFORMATION
  Report Type: Spontaneous
  Country: CA (occurrence: CA)
  Receive Date: 20200930
  Receipt Date: 20200930
  Transmission Date: 20201103
  Serious: Yes (Other)
  Sender: FDA-Public Use
  Company Number: CA-TEVA-2020-CA-1833494

PATIENT
  Age: 64 Year
  Sex: Female

DRUGS (10)
  1. MORPHINE [Suspect]
     Active Substance: MORPHINE
     Indication: ANAESTHESIA
  2. FENTANYL. [Suspect]
     Active Substance: FENTANYL
     Indication: ANAESTHESIA
  3. PHENYLEPHRINE HYDROCHLORIDE INJECTION USP [Suspect]
     Active Substance: PHENYLEPHRINE HYDROCHLORIDE
     Indication: PRODUCT USED FOR UNKNOWN INDICATION
     Route: 065
  4. PHENYLEPHRINE [Concomitant]
     Active Substance: PHENYLEPHRINE HYDROCHLORIDE
     Indication: PRODUCT USED FOR UNKNOWN INDICATION
     Route: 065
  5. CALCIUM CHLORIDE DIHYDRATE/MAGNESIUM CHLORIDE/POTASSIUM CHLORIDE/SODIU [Concomitant]
     Indication: PRODUCT USED FOR UNKNOWN INDICATION
     Route: 065
  6. LACTATED RINGERS SOLUTION [Suspect]
     Active Substance: CALCIUM CHLORIDE\POTASSIUM CHLORIDE\SODIUM CHLORIDE\SODIUM LACTATE
     Indication: PRODUCT USED FOR UNKNOWN INDICATION
     Route: 065
  7. MORPHINE [Suspect]
     Active Substance: MORPHINE
     Indication: SPINAL ANAESTHESIA
     Route: 065
  8. BUPIVACAINE. [Suspect]
     Active Substance: BUPIVACAINE
     Indication: SPINAL ANAESTHESIA
     Route: 065
  9. FENTANYL. [Suspect]
     Active Substance: FENTANYL
     Indication: SPINAL ANAESTHESIA
     Route: 065
  10. OXYTOCIN. [Concomitant]
     Active Substance: OXYTOCIN
     Indication: PRODUCT USED FOR UNKNOWN INDICATION
     Route: 065

REACTIONS (5)
  - Bradycardia [Recovered/Resolved]
  - Product use in unapproved indication [Unknown]
  - Atrioventricular block second degree [Recovered/Resolved]
  - Exposure during pregnancy [Recovered/Resolved]
  - Maternal exposure during pregnancy [Unknown]
